FAERS Safety Report 7425920-5 (Version None)
Quarter: 2011Q2

REPORT INFORMATION
  Report Type: 
  Country: None (occurrence: None)
  Receive Date: 20110420
  Receipt Date: 20110408
  Transmission Date: 20111010
  Serious: Yes (Other)
  Sender: FDA-Public Use
  Company Number: US-ROCHE-770349

PATIENT
  Sex: Male
  Weight: 78.8 kg

DRUGS (12)
  1. RO 5190591 (ITMN-191) [Suspect]
     Route: 065
     Dates: start: 20110321, end: 20110406
  2. SYNTHROID [Concomitant]
     Dates: start: 20090101
  3. RIBAVIRIN [Suspect]
     Dosage: FREQUENCY DAILY
     Route: 048
     Dates: start: 20110407
  4. PEGINTERFERON ALFA-2A [Suspect]
     Route: 058
     Dates: start: 20110407
  5. FLONASE [Concomitant]
     Dosage: AS REQUIRED
     Dates: start: 20100101
  6. LISINOPRIL [Concomitant]
     Dates: start: 20080101
  7. PRILOSEC [Concomitant]
     Dates: start: 20020101
  8. ALBUTEROL [Concomitant]
     Route: 048
  9. RIBAVIRIN [Suspect]
     Dosage: LAST DOSE PRIOR TO SAE 6 APRIL 2011.FREQUENCY DAILY
     Route: 048
     Dates: start: 20110321, end: 20110406
  10. RITONAVIR [Suspect]
     Route: 065
     Dates: end: 20110406
  11. PEGINTERFERON ALFA-2A [Suspect]
     Dosage: LAST DOSE PRIOR TO SAE 5 APRIL 2011
     Route: 058
     Dates: start: 20110321, end: 20110406
  12. HYDROCHLOROTHIAZIDE [Concomitant]
     Dates: start: 20090101

REACTIONS (8)
  - PANCREATITIS ACUTE [None]
  - DIARRHOEA [None]
  - HEART RATE INCREASED [None]
  - VOMITING [None]
  - DECREASED APPETITE [None]
  - MUSCLE SPASMS [None]
  - DEHYDRATION [None]
  - NAUSEA [None]
